FAERS Safety Report 9596391 (Version 2)
Quarter: 2013Q4

REPORT INFORMATION
  Report Type: Spontaneous
  Country: BR (occurrence: BR)
  Receive Date: 20131004
  Receipt Date: 20131004
  Transmission Date: 20140711
  Serious: Yes (Death)
  Sender: FDA-Public Use
  Company Number: BR-ABBVIE-13P-020-1106605-00

PATIENT
  Sex: 0

DRUGS (1)
  1. LUPRON [Suspect]
     Indication: MATERNAL EXPOSURE TIMING UNSPECIFIED
     Route: 064

REACTIONS (2)
  - Premature baby [Fatal]
  - Foetal exposure during pregnancy [Unknown]
